FAERS Safety Report 4429151-2 (Version None)
Quarter: 2004Q3

REPORT INFORMATION
  Report Type: 
  Country: None (occurrence: None)
  Receive Date: 20040726
  Receipt Date: 20040310
  Transmission Date: 20050211
  Serious: No
  Sender: FDA-Public Use
  Company Number: USA040361712

PATIENT
  Age: 54 Year
  Sex: Female

DRUGS (2)
  1. FORTEO [Suspect]
     Indication: OSTEOPOROSIS
     Dosage: 20 UG/1 DAY
     Dates: start: 20031101
  2. NEURONTIN [Concomitant]

REACTIONS (3)
  - ARTHRALGIA [None]
  - GINGIVAL BLEEDING [None]
  - TOOTHACHE [None]
